FAERS Safety Report 9324580 (Version 1)
Quarter: 2013Q2

REPORT INFORMATION
  Report Type: Spontaneous
  Country: US (occurrence: US)
  Receive Date: 20130603
  Receipt Date: 20130603
  Transmission Date: 20140414
  Serious: Yes (Other)
  Sender: FDA-Public Use
  Company Number: US-JNJFOC-20130515269

PATIENT
  Age: 34 Year
  Sex: Male
  Weight: 68.95 kg

DRUGS (3)
  1. BENADRYL ALLERGY ULTRATAB [Suspect]
     Indication: SLEEP DISORDER THERAPY
     Dosage: 200MG AND FOR ONE YEAR, ABOUT 5-6 YEARS AGO TOOK 800-900 MG
     Route: 048
     Dates: start: 20010521
  2. BENADRYL ALLERGY ULTRATAB [Suspect]
     Indication: MULTIPLE ALLERGIES
     Dosage: 200MG AND FOR ONE YEAR, ABOUT 5-6 YEARS AGO TOOK 800-900 MG
     Route: 048
     Dates: start: 20010521
  3. NEURONTIN [Suspect]
     Indication: BACK PAIN
     Route: 065

REACTIONS (4)
  - Blindness [Recovered/Resolved]
  - Overdose [Unknown]
  - Dry mouth [Recovered/Resolved]
  - Drug tolerance [Unknown]
